FAERS Safety Report 14940671 (Version 1)
Quarter: 2018Q2

REPORT INFORMATION
  Report Type: Report from Study
  Country: AR (occurrence: AR)
  Receive Date: 20180525
  Receipt Date: 20180525
  Transmission Date: 20180711
  Serious: Yes (Death)
  Sender: FDA-Public Use
  Company Number: AR-ACTELION-A-NJ2018-172877

PATIENT
  Age: 72 Year
  Sex: Female

DRUGS (3)
  1. ERYTHROPOIETIN [Concomitant]
     Active Substance: ERYTHROPOIETIN
  2. VENTAVIS [Suspect]
     Active Substance: ILOPROST
     Indication: PULMONARY HYPERTENSION
     Dosage: 5 MCG, UNK
     Route: 055
     Dates: start: 20171020, end: 20180502
  3. HYDROXYUREA. [Concomitant]
     Active Substance: HYDROXYUREA

REACTIONS (2)
  - Cardio-respiratory arrest [Fatal]
  - Agitation [Fatal]

NARRATIVE: CASE EVENT DATE: 20180502
